FAERS Safety Report 12926325 (Version 4)
Quarter: 2017Q1

REPORT INFORMATION
  Report Type: Report from Study
  Country: US (occurrence: US)
  Receive Date: 20161109
  Receipt Date: 20170209
  Transmission Date: 20170428
  Serious: Yes (Hospitalization, Other)
  Sender: FDA-Public Use
  Company Number: US-BAYER-2016-205788

PATIENT
  Age: 69 Year
  Sex: Female

DRUGS (1)
  1. NEXAVAR [Suspect]
     Active Substance: SORAFENIB
     Indication: HEPATOCELLULAR CARCINOMA
     Dosage: 200 MG, BID
     Route: 048
     Dates: start: 20161023, end: 20161024

REACTIONS (14)
  - Loss of consciousness [None]
  - Hypotension [None]
  - Dyspepsia [None]
  - Abdominal pain [None]
  - Tumour lysis syndrome [None]
  - Haemoglobin decreased [None]
  - White blood cell count increased [None]
  - Pulmonary fibrosis [None]
  - Diarrhoea [None]
  - Internal haemorrhage [None]
  - Anxiety [None]
  - Therapeutic embolisation [None]
  - Decreased appetite [None]
  - Fatigue [None]

NARRATIVE: CASE EVENT DATE: 201610
